FAERS Safety Report 12675098 (Version 1)
Quarter: 2016Q3

REPORT INFORMATION
  Report Type: Spontaneous
  Country: US (occurrence: US)
  Receive Date: 20160822
  Receipt Date: 20160822
  Transmission Date: 20161109
  Serious: Yes (Hospitalization, Other)
  Sender: FDA-Public Use
  Company Number: US-ELI_LILLY_AND_COMPANY-US201608006796

PATIENT
  Sex: Male

DRUGS (5)
  1. HUMULIN R [Concomitant]
     Active Substance: INSULIN HUMAN
  2. HUMALOG [Suspect]
     Active Substance: INSULIN LISPRO
     Indication: DIABETES MELLITUS
     Dosage: 2-4 UNITS DEPENDING ON BLOOD SUGAR PLUS CORRECTIONS
     Route: 058
     Dates: start: 2001
  3. INSULIN PORCINE [Concomitant]
     Active Substance: INSULIN DEFALAN (PORCINE)
  4. HUMULIN N [Concomitant]
     Active Substance: INSULIN HUMAN
  5. INSULIN BOVINE [Concomitant]

REACTIONS (6)
  - Atrial septal defect [Unknown]
  - Incorrect dose administered [Unknown]
  - Platelet count decreased [Unknown]
  - Cerebrovascular accident [Unknown]
  - Blood glucose increased [Unknown]
  - Prostate cancer stage IV [Unknown]

NARRATIVE: CASE EVENT DATE: 201111
